FAERS Safety Report 14187783 (Version 1)
Quarter: 2017Q4

REPORT INFORMATION
  Report Type: Spontaneous
  Country: US (occurrence: None)
  Receive Date: 20171114
  Receipt Date: 20171114
  Transmission Date: 20180321
  Serious: Yes (Other)
  Sender: FDA-Public Use
  Company Number: None

PATIENT

DRUGS (1)
  1. LUVOX [Suspect]
     Active Substance: FLUVOXAMINE MALEATE
     Indication: DEPRESSION
     Dosage: 1 AT BEDTIME
     Route: 048
     Dates: start: 20171013, end: 20171023

REACTIONS (6)
  - Influenza [None]
  - Retching [None]
  - Nausea [None]
  - Decreased appetite [None]
  - Somnolence [None]
  - Chills [None]

NARRATIVE: CASE EVENT DATE: 20171017
